FAERS Safety Report 8882884 (Version 1)
Quarter: 2012Q4

REPORT INFORMATION
  Report Type: 
  Country: US (occurrence: US)
  Receive Date: 20121102
  Receipt Date: 20121102
  Transmission Date: 20130627
  Serious: Yes (Death)
  Sender: FDA-Public Use
  Company Number: PHEH2012US021334

PATIENT
  Sex: Female

DRUGS (2)
  1. AFINITOR [Suspect]
     Indication: BREAST CANCER
     Dosage: 1 tablet, daily
     Route: 048
     Dates: start: 20120903, end: 20120911
  2. AFINITOR [Suspect]
     Dosage: 2 tablets, daily
     Route: 048

REACTIONS (2)
  - Death [Fatal]
  - Drug ineffective [Unknown]
